FAERS Safety Report 13018307 (Version 1)
Quarter: 2016Q4

REPORT INFORMATION
  Report Type: Spontaneous
  Country: US (occurrence: US)
  Receive Date: 20161212
  Receipt Date: 20161212
  Transmission Date: 20170207
  Serious: Yes (Other)
  Sender: FDA-Public Use
  Company Number: US-APOTEX-2016AP015564

PATIENT
  Age: 66 Year
  Sex: Female

DRUGS (2)
  1. CARBAMAZEPINE. [Suspect]
     Active Substance: CARBAMAZEPINE
     Indication: SEIZURE
     Dosage: 600 MG, BID
     Route: 065
  2. OXCARBAZEPINE. [Suspect]
     Active Substance: OXCARBAZEPINE
     Indication: SEIZURE
     Dosage: 600 MG, BID
     Route: 065

REACTIONS (7)
  - Generalised tonic-clonic seizure [Unknown]
  - Cognitive disorder [Unknown]
  - Hyponatraemia [Unknown]
  - Dizziness [Unknown]
  - Flushing [Unknown]
  - Amnesia [Unknown]
  - Drug ineffective [Unknown]
